FAERS Safety Report 8086701-5 (Version None)
Quarter: 2012Q1

REPORT INFORMATION
  Report Type: 
  Country: None (occurrence: None)
  Receive Date: 20120128
  Receipt Date: 20110418
  Transmission Date: 20120608
  Serious: No
  Sender: FDA-Public Use
  Company Number: US-ABBOTT-11P-163-0720757-00

PATIENT
  Sex: Female
  Weight: 58.112 kg

DRUGS (7)
  1. CALCIUM [Concomitant]
     Indication: MINERAL SUPPLEMENTATION
  2. LEFLUNOMIDE [Concomitant]
     Indication: RHEUMATOID ARTHRITIS
  3. MULTI-VITAMINS [Concomitant]
     Indication: VITAMIN SUPPLEMENTATION
  4. HUMIRA [Suspect]
     Indication: RHEUMATOID ARTHRITIS
     Dates: start: 20110101
  5. IBUPROFEN [Concomitant]
     Indication: PAIN
  6. VICODIN [Concomitant]
     Indication: PAIN
  7. FISH OIL [Concomitant]
     Indication: SUPPLEMENTATION THERAPY

REACTIONS (2)
  - VISION BLURRED [None]
  - VULVOVAGINAL PRURITUS [None]
